FAERS Safety Report 7669213-X (Version None)
Quarter: 2011Q3

REPORT INFORMATION
  Report Type: 
  Country: None (occurrence: None)
  Receive Date: 20110808
  Receipt Date: 20110728
  Transmission Date: 20111222
  Serious: Yes (Hospitalization)
  Sender: FDA-Public Use
  Company Number: PHHY2011FR68547

PATIENT
  Age: 59 Year
  Sex: Male

DRUGS (1)
  1. SANDOSTATIN [Suspect]
     Indication: GASTROINTESTINAL DISORDER
     Dosage: 100 UG/ML
     Dates: start: 20110609

REACTIONS (7)
  - PANCREATITIS [None]
  - C-REACTIVE PROTEIN INCREASED [None]
  - ASPARTATE AMINOTRANSFERASE INCREASED [None]
  - HYPERLIPASAEMIA [None]
  - BLOOD AMYLASE INCREASED [None]
  - ABDOMINAL PAIN UPPER [None]
  - ALANINE AMINOTRANSFERASE INCREASED [None]
